FAERS Safety Report 9170161 (Version 1)
Quarter: 2013Q1

REPORT INFORMATION
  Report Type: Spontaneous
  Country: GB (occurrence: None)
  Receive Date: 20130312
  Receipt Date: 20130312
  Transmission Date: 20140127
  Serious: Yes (Other)
  Sender: FDA-Public Use
  Company Number: GB-DEXPHARM-20130091

PATIENT
  Age: 52 Year
  Sex: Male

DRUGS (4)
  1. HUMIRA [Suspect]
     Indication: PSORIASIS
     Dosage: 40 MG MILLIGRAM(S) EVERY 2 WEEK DOSE: 40 MG MILLIGRAM(S) SEP DOSAGES/INTERVAL: 1 IN 2 WEEK
     Route: 058
  2. DICLOFENAC [Suspect]
     Indication: PRODUCT USED FOR UNKNOWN INDICATION
  3. OMEPRAZOLE [Suspect]
  4. CO-CODAMOL [Suspect]

REACTIONS (3)
  - Anaphylactic reaction [None]
  - Nephrolithiasis [None]
  - Renal pain [None]
